FAERS Safety Report 6292422-1 (Version None)
Quarter: 2009Q3

REPORT INFORMATION
  Report Type: 
  Country: None (occurrence: None)
  Receive Date: 20090731
  Receipt Date: 20090722
  Transmission Date: 20100115
  Serious: Yes (Disabling)
  Sender: FDA-Public Use
  Company Number: PHHY2009IT30465

PATIENT
  Sex: Female

DRUGS (3)
  1. ZOMETA [Suspect]
     Indication: METASTASES TO BONE
     Dosage: UNK
     Route: 042
     Dates: start: 20020801, end: 20080212
  2. ZOMETA [Suspect]
     Indication: BREAST CANCER
  3. INSULINA [Concomitant]
     Indication: DIABETES MELLITUS

REACTIONS (2)
  - BONE DISORDER [None]
  - OSTEONECROSIS [None]
